FAERS Safety Report 10389638 (Version 2)
Quarter: 2015Q1

REPORT INFORMATION
  Report Type: Spontaneous
  Country: US (occurrence: None)
  Receive Date: 20140813
  Receipt Date: 20150202
  Transmission Date: 20150720
  Serious: Yes (Other)
  Sender: FDA-Public Use
  Company Number: 2014AP003777

PATIENT
  Age: 73 Year
  Sex: Male
  Weight: 85.7 kg

DRUGS (11)
  1. DACOGEN [Suspect]
     Active Substance: DECITABINE
     Indication: ACUTE MYELOID LEUKAEMIA
  2. ONDANSETRON. [Concomitant]
     Active Substance: ONDANSETRON
  3. PROCHLORPERAZINE (PROCHLORPERAZINE) [Concomitant]
     Active Substance: PROCHLORPERAZINE
  4. SYNTHROID [Concomitant]
     Active Substance: LEVOTHYROXINE SODIUM
  5. FERRIPROX [Suspect]
     Active Substance: DEFERIPRONE
     Indication: IRON METABOLISM DISORDER
     Route: 048
     Dates: start: 20140106, end: 20140729
  6. HYDROCODONE W/PARACETAMOL (HYDROCODONE, PARACETAMOL) [Concomitant]
  7. LORAZEPAM (LORAZEPAM) [Concomitant]
     Active Substance: LORAZEPAM
  8. MAGNESIUM (MAGNESIUM) [Concomitant]
     Active Substance: MAGNESIUM
  9. ROPINIROL (ROPINIROLE HYDROCHLORIDE) [Concomitant]
  10. ACYCLOVIR (ACICLOVIR) (ACICLOVIR) [Concomitant]
     Active Substance: ACYCLOVIR
  11. FLUCONAZOLE (FLUCONAZOLE) [Concomitant]
     Active Substance: FLUCONAZOLE

REACTIONS (2)
  - Agranulocytosis [None]
  - Oropharyngeal pain [None]

NARRATIVE: CASE EVENT DATE: 201407
